FAERS Safety Report 10651739 (Version 1)
Quarter: 2014Q4

REPORT INFORMATION
  Report Type: Spontaneous
  Country: PH (occurrence: None)
  Receive Date: 20141211
  Receipt Date: 20141211
  Transmission Date: 20150529
  Serious: Yes (Hospitalization)
  Sender: FDA-Public Use
  Company Number: 2014JUB00208

PATIENT
  Age: 64 Year
  Sex: Male

DRUGS (1)
  1. PREDNISONE (PREDNISONE) UNKNOWN [Suspect]
     Active Substance: PREDNISONE
     Indication: GLOMERULONEPHRITIS

REACTIONS (6)
  - Gastrointestinal inflammation [None]
  - Septic shock [None]
  - Strongyloidiasis [None]
  - Pneumonia [None]
  - Pulmonary granuloma [None]
  - Condition aggravated [None]
